FAERS Safety Report 7710058-X (Version None)
Quarter: 2011Q3

REPORT INFORMATION
  Report Type: 
  Country: None (occurrence: None)
  Receive Date: 20110825
  Receipt Date: 20110819
  Transmission Date: 20111222
  Serious: Yes (Other)
  Sender: FDA-Public Use
  Company Number: PHEH2011US02137

PATIENT
  Sex: Male

DRUGS (4)
  1. ADVAIR DISKUS 100/50 [Concomitant]
     Dosage: UNK UKN, UNK
  2. LISINOPRIL [Suspect]
     Dosage: UNK UKN, UNK
  3. METOPROLOL TARTRATE [Suspect]
     Dosage: 25 MG, UNK
  4. CLONIDINE [Suspect]
     Dosage: UNK UKN, UNK

REACTIONS (5)
  - DYSPNOEA [None]
  - FEELING ABNORMAL [None]
  - MENTAL DISORDER [None]
  - MALAISE [None]
  - DRUG INEFFECTIVE [None]
